FAERS Safety Report 17823286 (Version 1)
Quarter: 2020Q2

REPORT INFORMATION
  Report Type: Spontaneous
  Country: US (occurrence: US)
  Receive Date: 20200526
  Receipt Date: 20200526
  Transmission Date: 20200714
  Serious: Yes (Death, Hospitalization, Other)
  Sender: FDA-Public Use
  Company Number: US-CIPLA LTD.-2020US03482

PATIENT

DRUGS (3)
  1. WARFARIN [Suspect]
     Active Substance: WARFARIN
     Indication: ATRIAL FIBRILLATION
     Dosage: UNK
     Route: 065
  2. SENSIPAR [Concomitant]
     Active Substance: CINACALCET HYDROCHLORIDE
     Indication: HYPERPARATHYROIDISM SECONDARY
     Dosage: 30 MG, DAILY
     Route: 065
  3. WARFARIN [Suspect]
     Active Substance: WARFARIN
     Indication: MITRAL VALVE REPLACEMENT

REACTIONS (9)
  - Sepsis [Fatal]
  - Haematemesis [Unknown]
  - Lethargy [Unknown]
  - Cellulitis [Unknown]
  - Wound [Unknown]
  - Multiple organ dysfunction syndrome [Unknown]
  - Gastric disorder [Unknown]
  - Encephalopathy [Unknown]
  - Calciphylaxis [Unknown]
